FAERS Safety Report 20034129 (Version 2)
Quarter: 2022Q1

REPORT INFORMATION
  Report Type: Spontaneous
  Country: US (occurrence: US)
  Receive Date: 20211104
  Receipt Date: 20220127
  Transmission Date: 20220423
  Serious: No
  Sender: FDA-Public Use
  Company Number: US-PFIZER INC-202100934981

PATIENT
  Age: 38 Year
  Sex: Female

DRUGS (1)
  1. XELJANZ XR [Suspect]
     Active Substance: TOFACITINIB CITRATE
     Indication: Rheumatoid arthritis
     Dosage: 11 MG, DAILY
     Route: 048
     Dates: start: 20210718

REACTIONS (4)
  - Nightmare [Unknown]
  - Erythema [Unknown]
  - Pruritus [Unknown]
  - Skin swelling [Unknown]

NARRATIVE: CASE EVENT DATE: 20210701
